FAERS Safety Report 7092903-7 (Version None)
Quarter: 2010Q4

REPORT INFORMATION
  Report Type: 
  Country: None (occurrence: None)
  Receive Date: 20101110
  Receipt Date: 20101029
  Transmission Date: 20110411
  Serious: Yes (Other)
  Sender: FDA-Public Use
  Company Number: US-PFIZER INC-2008085371

PATIENT
  Sex: Female

DRUGS (8)
  1. LYRICA [Interacting]
     Indication: PAIN
     Dosage: 75 MG, 2X/DAY
     Dates: start: 20061001, end: 20061101
  2. LYRICA [Interacting]
     Indication: NEURALGIA
     Dosage: 75 MG, UNK
     Route: 048
     Dates: start: 20061001, end: 20061101
  3. NEURONTIN [Suspect]
     Indication: NEURALGIA
     Dosage: 300 MG, 4X/DAY
     Route: 048
     Dates: start: 20000101, end: 20010301
  4. NEURONTIN [Suspect]
     Dosage: 2400 MG, 1X/DAY
     Route: 048
     Dates: start: 20010301, end: 20010701
  5. TRAMADOL HCL [Concomitant]
  6. BACLOFEN [Concomitant]
  7. PROTONIX [Concomitant]
  8. MAXALT [Concomitant]

REACTIONS (15)
  - ABDOMINAL DISCOMFORT [None]
  - ALOPECIA [None]
  - DRUG INEFFECTIVE [None]
  - DRUG INTERACTION [None]
  - FATIGUE [None]
  - FEELING ABNORMAL [None]
  - FUNGAL INFECTION [None]
  - GAIT DISTURBANCE [None]
  - HYPERSOMNIA [None]
  - HYPOKINESIA [None]
  - LACTOSE INTOLERANCE [None]
  - MALAISE [None]
  - MIGRAINE [None]
  - PRESYNCOPE [None]
  - WEIGHT INCREASED [None]
